FAERS Safety Report 16339019 (Version 1)
Quarter: 2019Q2

REPORT INFORMATION
  Report Type: Spontaneous
  Country: US (occurrence: US)
  Receive Date: 20190521
  Receipt Date: 20190521
  Transmission Date: 20190711
  Serious: No
  Sender: FDA-Public Use
  Company Number: US-MYLANLABS-2019M1041814

PATIENT
  Sex: Male
  Weight: 79 kg

DRUGS (1)
  1. VERAPAMIL HYDROCHLORIDE EXTENDED-RELEASE TABLETS, USP [Suspect]
     Active Substance: VERAPAMIL HYDROCHLORIDE
     Indication: CHEST PAIN
     Dosage: UNK
     Route: 048

REACTIONS (3)
  - Drug ineffective [Not Recovered/Not Resolved]
  - Product appearance confusion [Unknown]
  - Heart rate increased [Recovered/Resolved]
